FAERS Safety Report 7250326-1 (Version None)
Quarter: 2011Q1

REPORT INFORMATION
  Report Type: 
  Country: None (occurrence: None)
  Receive Date: 20110128
  Receipt Date: 20110124
  Transmission Date: 20110831
  Serious: Yes (Death, Hospitalization, Other)
  Sender: FDA-Public Use
  Company Number: US-B.I. PHARMACEUTICALS,INC./RIDGEFIELD-2010-BP-15279BP

PATIENT
  Age: 82 Year
  Sex: Male
  Weight: 128.37 kg

DRUGS (5)
  1. ALISKIREN [Concomitant]
     Dosage: 150 MG
     Dates: start: 20101224, end: 20101225
  2. CARVEDILOL [Concomitant]
     Dosage: 6.25 MG
     Route: 048
     Dates: start: 20101220, end: 20101225
  3. DIGOXIN [Concomitant]
     Dosage: 0.125 MG
     Dates: start: 20101223, end: 20101226
  4. AMIODARONE [Concomitant]
     Indication: ATRIAL FIBRILLATION
     Dosage: 400 MG
     Route: 048
     Dates: start: 20101220, end: 20101226
  5. PRADAXA [Suspect]
     Indication: ATRIAL FIBRILLATION
     Dosage: 300 MG
     Route: 048
     Dates: start: 20101223, end: 20101225

REACTIONS (7)
  - ACUTE HEPATIC FAILURE [None]
  - FAECES DISCOLOURED [None]
  - MELAENA [None]
  - HYPOTENSION [None]
  - GASTROINTESTINAL HAEMORRHAGE [None]
  - HEPATORENAL SYNDROME [None]
  - PNEUMONIA [None]
